FAERS Safety Report 5363226-9 (Version None)
Quarter: 2007Q2

REPORT INFORMATION
  Report Type: 
  Country: None (occurrence: None)
  Receive Date: 20070618
  Receipt Date: 20070618
  Transmission Date: 20071010
  Serious: No
  Sender: FDA-Public Use
  Company Number: None

PATIENT
  Sex: Female
  Weight: 89.1772 kg

DRUGS (4)
  1. ISONIAZID [Suspect]
     Indication: LATENT TUBERCULOSIS
     Dosage: 1 TAB 300 MG QD (ONCE/DAY) PO
     Route: 048
     Dates: start: 20070403, end: 20070609
  2. ISONIAZID [Suspect]
  3. ISONIAZID [Suspect]
  4. PYRIDOXINE 25MG AKYMA (1/2 50MG TAB) QD [Suspect]
     Indication: LATENT TUBERCULOSIS
     Dosage: 1/2 TAB-50 MG QD ONCE/DAY PO
     Route: 048
     Dates: start: 20070403, end: 20070609

REACTIONS (6)
  - ALANINE AMINOTRANSFERASE INCREASED [None]
  - ASPARTATE AMINOTRANSFERASE INCREASED [None]
  - CHROMATURIA [None]
  - HEPATITIS ACUTE [None]
  - NAUSEA [None]
  - VOMITING [None]
